FAERS Safety Report 7557031-2 (Version None)
Quarter: 2011Q2

REPORT INFORMATION
  Report Type: 
  Country: None (occurrence: None)
  Receive Date: 20110620
  Receipt Date: 20110609
  Transmission Date: 20111010
  Serious: Yes (Other)
  Sender: FDA-Public Use
  Company Number: PHHY2011US52622

PATIENT
  Age: 15 Year
  Sex: Male

DRUGS (1)
  1. RITALIN [Suspect]
     Indication: ATTENTION DEFICIT/HYPERACTIVITY DISORDER
     Dosage: 10 MG, BID

REACTIONS (12)
  - BODY TEMPERATURE INCREASED [None]
  - GAIT DISTURBANCE [None]
  - HEADACHE [None]
  - HEAT ILLNESS [None]
  - NAUSEA [None]
  - HYPERHIDROSIS [None]
  - URINE COLOUR ABNORMAL [None]
  - TACHYCARDIA [None]
  - RESPIRATORY RATE INCREASED [None]
  - MUSCLE SPASMS [None]
  - UNRESPONSIVE TO STIMULI [None]
  - DIZZINESS [None]
